FAERS Safety Report 6821637-6 (Version None)
Quarter: 2010Q3

REPORT INFORMATION
  Report Type: 
  Country: None (occurrence: None)
  Receive Date: 20100707
  Receipt Date: 20090604
  Transmission Date: 20110219
  Serious: No
  Sender: FDA-Public Use
  Company Number: US-PFIZER INC-2009157203

PATIENT
  Sex: Male
  Weight: 86.2 kg

DRUGS (2)
  1. ZOLOFT [Suspect]
     Indication: DEPRESSION
     Dates: start: 20050101, end: 20080601
  2. TOPROL-XL [Concomitant]
     Indication: ARRHYTHMIA
     Dosage: UNK

REACTIONS (4)
  - ABNORMAL DREAMS [None]
  - AUTONOMIC FAILURE SYNDROME [None]
  - FALL [None]
  - WEIGHT DECREASED [None]
